FAERS Safety Report 4534787-4 (Version None)
Quarter: 2004Q4

REPORT INFORMATION
  Report Type: 
  Country: None (occurrence: None)
  Receive Date: 20041222
  Receipt Date: 20040308
  Transmission Date: 20050328
  Serious: No
  Sender: FDA-Public Use
  Company Number: US-BRISTOL-MYERS SQUIBB COMPANY-12527511

PATIENT
  Sex: Female

DRUGS (5)
  1. PRAVACHOL [Suspect]
     Indication: BLOOD CHOLESTEROL INCREASED
     Route: 048
  2. ATIVAN [Concomitant]
  3. SEROQUEL [Concomitant]
  4. ZOLOFT [Concomitant]
  5. TOPAMAX [Concomitant]

REACTIONS (1)
  - WEIGHT INCREASED [None]
